FAERS Safety Report 8500654-4 (Version None)
Quarter: 2012Q3

REPORT INFORMATION
  Report Type: 
  Country: None (occurrence: None)
  Receive Date: 20120710
  Receipt Date: 20120704
  Transmission Date: 20120928
  Serious: Yes (Hospitalization, Other)
  Sender: FDA-Public Use
  Company Number: BR-ROCHE-1084541

PATIENT
  Sex: Female
  Weight: 86 kg

DRUGS (4)
  1. LEVOTHYROXINE SODIUM [Concomitant]
  2. MABTHERA [Suspect]
     Indication: RHEUMATOID ARTHRITIS
     Route: 042
     Dates: start: 20110603, end: 20111212
  3. UNSPECIFIED DRUG [Concomitant]
     Indication: PAIN
  4. ARAVA [Concomitant]

REACTIONS (3)
  - PAIN IN EXTREMITY [None]
  - WEIGHT INCREASED [None]
  - INFLAMMATION [None]
